FAERS Safety Report 9497690 (Version 1)
Quarter: 2013Q3

REPORT INFORMATION
  Report Type: Spontaneous
  Country: US (occurrence: US)
  Receive Date: 20130904
  Receipt Date: 20130904
  Transmission Date: 20140515
  Serious: No
  Sender: FDA-Public Use
  Company Number: US-AMGEN-USASP2013060647

PATIENT
  Age: 47 Year
  Sex: Female

DRUGS (1)
  1. ENBREL [Suspect]
     Indication: ANKYLOSING SPONDYLITIS
     Dosage: 25 MG, EVERY 4 - 5 DAYS
     Route: 065
     Dates: start: 20050701

REACTIONS (2)
  - Body temperature decreased [Not Recovered/Not Resolved]
  - Sinusitis [Recovered/Resolved]
